FAERS Safety Report 20540027 (Version 1)
Quarter: 2022Q1

REPORT INFORMATION
  Report Type: Spontaneous
  Country: JP (occurrence: JP)
  Receive Date: 20220302
  Receipt Date: 20220302
  Transmission Date: 20220423
  Serious: Yes (Other)
  Sender: FDA-Public Use
  Company Number: JP-MTPC-MTPC2021-0027933

PATIENT
  Age: 79 Year
  Sex: Female

DRUGS (1)
  1. CANAGLIFLOZIN [Suspect]
     Active Substance: CANAGLIFLOZIN
     Indication: Type 2 diabetes mellitus
     Dosage: UNK
     Route: 065

REACTIONS (5)
  - Hyperthyroidism [Unknown]
  - Gastroduodenal ulcer [Unknown]
  - Thyrotoxic crisis [Unknown]
  - Emphysematous pyelonephritis [Recovering/Resolving]
  - Emphysematous cystitis [Recovering/Resolving]
